FAERS Safety Report 5177093-X (Version None)
Quarter: 2006Q4

REPORT INFORMATION
  Report Type: 
  Country: None (occurrence: None)
  Receive Date: 20061207
  Receipt Date: 20061124
  Transmission Date: 20070319
  Serious: Yes (Disabling)
  Sender: FDA-Public Use
  Company Number: 2006146319

PATIENT
  Age: 81 Year
  Sex: Male
  Weight: 92 kg

DRUGS (5)
  1. HYDROCORTISONE ACETATE [Suspect]
     Indication: HAEMORRHOIDS
     Dosage: 5 MG, RECTAL
     Route: 054
     Dates: start: 20061024, end: 20061025
  2. CINCHOCAINE (CINCHOCAINE) [Suspect]
     Indication: HAEMORRHOIDS
     Dosage: 5 MG, RECTAL
     Route: 054
     Dates: start: 20061024, end: 20061025
  3. BETAHISTINE [Concomitant]
  4. FYBOGEL (ISPAGHULA) [Concomitant]
  5. SENNA [Concomitant]

REACTIONS (2)
  - DRUG ERUPTION [None]
  - URTICARIA [None]
